FAERS Safety Report 5113009-X (Version None)
Quarter: 2006Q3

REPORT INFORMATION
  Report Type: 
  Country: None (occurrence: None)
  Receive Date: 20060920
  Receipt Date: 20060908
  Transmission Date: 20061208
  Serious: Yes (Hospitalization)
  Sender: FDA-Public Use
  Company Number: S05-USA-04861-01

PATIENT
  Age: 27 Year
  Sex: Female

DRUGS (3)
  1. LEXAPRO [Suspect]
     Indication: POSTPARTUM DEPRESSION
     Dosage: 10 MG QD PO
     Route: 048
     Dates: start: 20041101
  2. LEXAPRO [Suspect]
     Indication: POSTPARTUM DEPRESSION
     Dosage: 10 MG QD PO
     Route: 048
     Dates: end: 20051031
  3. PRENATAL VITAMIN (NOS) [Concomitant]

REACTIONS (10)
  - CAESAREAN SECTION [None]
  - DIZZINESS [None]
  - DRUG DOSE OMISSION [None]
  - DRUG EXPOSURE DURING PREGNANCY [None]
  - FEELING ABNORMAL [None]
  - INFECTION [None]
  - PARAESTHESIA [None]
  - PREGNANCY [None]
  - PREMATURE RUPTURE OF MEMBRANES [None]
  - TREATMENT NONCOMPLIANCE [None]
